FAERS Safety Report 26071532 (Version 2)
Quarter: 2025Q4

REPORT INFORMATION
  Report Type: Spontaneous
  Country: US (occurrence: US)
  Receive Date: 20251120
  Receipt Date: 20251214
  Transmission Date: 20260117
  Serious: Yes (Other)
  Sender: AMGEN
  Company Number: US-AMGEN-USASP2025227570

PATIENT
  Age: 60 Year
  Sex: Male

DRUGS (3)
  1. REPATHA [Suspect]
     Active Substance: EVOLOCUMAB
     Indication: Product used for unknown indication
     Dosage: 0.25 MILLIGRAM, Q2WK
     Route: 058
  2. REPATHA [Suspect]
     Active Substance: EVOLOCUMAB
     Dosage: UNK, QWK
     Route: 058
  3. OZEMPIC [Concomitant]
     Active Substance: SEMAGLUTIDE
     Route: 065

REACTIONS (5)
  - Atypical pneumonia [Not Recovered/Not Resolved]
  - Pneumonia viral [Not Recovered/Not Resolved]
  - Incorrect dose administered [Unknown]
  - Inappropriate schedule of product administration [Unknown]
  - Product label confusion [Unknown]

NARRATIVE: CASE EVENT DATE: 20251111
